FAERS Safety Report 4900655-9 (Version None)
Quarter: 2006Q1

REPORT INFORMATION
  Report Type: 
  Country: None (occurrence: None)
  Receive Date: 20060201
  Receipt Date: 20060116
  Transmission Date: 20060701
  Serious: Yes (Other)
  Sender: FDA-Public Use
  Company Number: US200601002592

PATIENT
  Age: 1 Year
  Sex: Male

DRUGS (6)
  1. HUMALOG [Suspect]
     Indication: DIABETES MELLITUS
     Dosage: 20 U, DAILY (1/D)
     Dates: start: 19990101
  2. HUMULIN L [Suspect]
     Indication: DIABETES MELLITUS
     Dosage: 25 U DAILY (1/D)
     Dates: start: 20030101, end: 20060101
  3. HUMULIN R [Suspect]
     Indication: DIABETES MELLITUS
     Dosage: 25 U DAILY (1/D)
  4. HUMULIN N [Suspect]
     Indication: DIABETES MELLITUS
     Dates: end: 20040101
  5. LOTENSIN [Concomitant]
  6. PROPOXYPHENE (DEXTROPROPXYPHENE) [Concomitant]

REACTIONS (8)
  - BLINDNESS UNILATERAL [None]
  - DIABETES MELLITUS INADEQUATE CONTROL [None]
  - HYPERTENSION [None]
  - MYOCARDIAL INFARCTION [None]
  - PROTEIN URINE PRESENT [None]
  - ROAD TRAFFIC ACCIDENT [None]
  - SPINAL FUSION SURGERY [None]
  - TREATMENT NONCOMPLIANCE [None]
